FAERS Safety Report 7684163-0 (Version None)
Quarter: 2011Q3

REPORT INFORMATION
  Report Type: 
  Country: None (occurrence: None)
  Receive Date: 20110815
  Receipt Date: 20110804
  Transmission Date: 20111222
  Serious: Yes (Other)
  Sender: FDA-Public Use
  Company Number: US-BAYER-2011-069703

PATIENT
  Sex: Female

DRUGS (2)
  1. MIRENA [Suspect]
     Indication: MENORRHAGIA
     Route: 015
  2. MIRENA [Suspect]
     Indication: CONTRACEPTION

REACTIONS (3)
  - ABDOMINAL PAIN [None]
  - DEVICE DIFFICULT TO USE [None]
  - DEVICE DISLOCATION [None]
